FAERS Safety Report 10060513 (Version 3)
Quarter: 2014Q2

REPORT INFORMATION
  Report Type: Spontaneous
  Country: GB (occurrence: GB)
  Receive Date: 20140404
  Receipt Date: 20140603
  Transmission Date: 20141212
  Serious: Yes (Other)
  Sender: FDA-Public Use
  Company Number: GB-JNJFOC-20140317120

PATIENT
  Sex: Female

DRUGS (20)
  1. DUROGESIC DTRANS [Suspect]
     Indication: MUSCULOSKELETAL PAIN
     Route: 062
  2. DUROGESIC DTRANS [Suspect]
     Indication: MUSCULOSKELETAL PAIN
     Route: 062
  3. DUROGESIC DTRANS [Suspect]
     Indication: MUSCULOSKELETAL PAIN
     Route: 062
  4. DUROGESIC DTRANS [Suspect]
     Indication: MUSCULOSKELETAL PAIN
     Route: 062
  5. DUROGESIC DTRANS [Suspect]
     Indication: MUSCULOSKELETAL PAIN
     Route: 062
     Dates: end: 20140404
  6. DUROGESIC DTRANS [Suspect]
     Indication: NECK PAIN
     Route: 062
  7. DUROGESIC DTRANS [Suspect]
     Indication: NECK PAIN
     Route: 062
  8. DUROGESIC DTRANS [Suspect]
     Indication: NECK PAIN
     Route: 062
  9. DUROGESIC DTRANS [Suspect]
     Indication: NECK PAIN
     Route: 062
     Dates: end: 20140404
  10. DUROGESIC DTRANS [Suspect]
     Indication: NECK PAIN
     Route: 062
  11. DUROGESIC DTRANS [Suspect]
     Indication: FIBROMYALGIA
     Route: 062
  12. DUROGESIC DTRANS [Suspect]
     Indication: FIBROMYALGIA
     Route: 062
  13. DUROGESIC DTRANS [Suspect]
     Indication: FIBROMYALGIA
     Route: 062
  14. DUROGESIC DTRANS [Suspect]
     Indication: FIBROMYALGIA
     Route: 062
  15. DUROGESIC DTRANS [Suspect]
     Indication: FIBROMYALGIA
     Route: 062
     Dates: end: 20140404
  16. DUROGESIC DTRANS [Suspect]
     Indication: BACK PAIN
     Route: 062
  17. DUROGESIC DTRANS [Suspect]
     Indication: BACK PAIN
     Route: 062
  18. DUROGESIC DTRANS [Suspect]
     Indication: BACK PAIN
     Route: 062
  19. DUROGESIC DTRANS [Suspect]
     Indication: BACK PAIN
     Route: 062
  20. DUROGESIC DTRANS [Suspect]
     Indication: BACK PAIN
     Route: 062
     Dates: end: 20140404

REACTIONS (11)
  - Drug ineffective [Unknown]
  - Nightmare [Not Recovered/Not Resolved]
  - Diarrhoea [Unknown]
  - Constipation [Unknown]
  - Pruritus [Unknown]
  - Suicidal ideation [Not Recovered/Not Resolved]
  - Hallucination [Not Recovered/Not Resolved]
  - Depression [Not Recovered/Not Resolved]
  - Peripheral swelling [Unknown]
  - Application site rash [Not Recovered/Not Resolved]
  - Weight decreased [Unknown]
